FAERS Safety Report 16868813 (Version 1)
Quarter: 2019Q3

REPORT INFORMATION
  Report Type: Spontaneous
  Country: US (occurrence: US)
  Receive Date: 20190930
  Receipt Date: 20190930
  Transmission Date: 20191005
  Serious: No
  Sender: FDA-Public Use
  Company Number: US-AMGEN-USASP2019157909

PATIENT
  Age: 48 Year
  Sex: Female

DRUGS (5)
  1. REPATHA [Suspect]
     Active Substance: EVOLOCUMAB
     Indication: MYOCARDIAL INFARCTION
  2. SYNTHROID [Concomitant]
     Active Substance: LEVOTHYROXINE SODIUM
  3. REPATHA [Suspect]
     Active Substance: EVOLOCUMAB
     Indication: CARDIOVASCULAR DISORDER
     Dosage: 140 MILLIGRAM, Q2WK
     Route: 065
     Dates: start: 201902, end: 201907
  4. COREG [Concomitant]
     Active Substance: CARVEDILOL
  5. LIPITOR [Concomitant]
     Active Substance: ATORVASTATIN CALCIUM
     Dosage: 80 MILLIGRAM

REACTIONS (3)
  - Injection site pruritus [Unknown]
  - Weight increased [Unknown]
  - Injection site swelling [Unknown]

NARRATIVE: CASE EVENT DATE: 2019
